FAERS Safety Report 7865641-8 (Version None)
Quarter: 2011Q4

REPORT INFORMATION
  Report Type: 
  Country: None (occurrence: None)
  Receive Date: 20111028
  Receipt Date: 20110127
  Transmission Date: 20120403
  Serious: No
  Sender: FDA-Public Use
  Company Number: US-GLAXOSMITHKLINE-A0909849A

PATIENT
  Age: 69 Year
  Sex: Female

DRUGS (10)
  1. METOPROLOL TARTRATE [Concomitant]
  2. XOPENEX [Concomitant]
  3. MUCINEX [Concomitant]
  4. ADVAIR DISKUS 100/50 [Suspect]
     Indication: CHRONIC OBSTRUCTIVE PULMONARY DISEASE
     Dosage: 1PUFF TWICE PER DAY
     Route: 055
     Dates: start: 20100901
  5. TYLENOL-500 [Concomitant]
  6. NEXIUM [Concomitant]
  7. CLONAZEPAM [Concomitant]
  8. TRAZODONE HYDROCHLORIDE [Concomitant]
  9. PAROXETINE HCL [Concomitant]
  10. NASAL SPRAY [Concomitant]

REACTIONS (4)
  - PHOTOSENSITIVITY REACTION [None]
  - SUNBURN [None]
  - SKIN BURNING SENSATION [None]
  - CANDIDIASIS [None]
